FAERS Safety Report 8264462-4 (Version None)
Quarter: 2012Q2

REPORT INFORMATION
  Report Type: 
  Country: None (occurrence: None)
  Receive Date: 20120406
  Receipt Date: 20120329
  Transmission Date: 20120825
  Serious: Yes (Hospitalization)
  Sender: FDA-Public Use
  Company Number: FR-JNJFOC-20120401876

PATIENT
  Sex: Male

DRUGS (2)
  1. RIVAROXABAN [Suspect]
     Indication: THROMBOSIS PROPHYLAXIS
     Route: 048
  2. RIVAROXABAN [Suspect]
     Indication: KNEE ARTHROPLASTY
     Route: 048

REACTIONS (3)
  - SOFT TISSUE NECROSIS [None]
  - INFECTION [None]
  - POST PROCEDURAL HAEMATOMA [None]
